FAERS Safety Report 9219868 (Version 1)
Quarter: 2013Q2

REPORT INFORMATION
  Report Type: Spontaneous
  Country: US (occurrence: None)
  Receive Date: 20130408
  Receipt Date: 20130408
  Transmission Date: 20140414
  Serious: Yes (Hospitalization, Other)
  Sender: FDA-Public Use
  Company Number: None

PATIENT
  Age: 87 Year
  Sex: Female
  Weight: 55.34 kg

DRUGS (3)
  1. AMIODARONE [Suspect]
     Indication: ATRIAL FIBRILLATION
     Dosage: AM
     Route: 048
     Dates: start: 20111120, end: 20130405
  2. AMIODARONE [Suspect]
     Indication: POST PROCEDURAL COMPLICATION
     Dosage: AM
     Route: 048
     Dates: start: 20111120, end: 20130405
  3. AMIODARONE [Concomitant]

REACTIONS (9)
  - Cardiac failure congestive [None]
  - Dizziness [None]
  - Coordination abnormal [None]
  - Vision blurred [None]
  - Diplopia [None]
  - Asthenia [None]
  - Gait disturbance [None]
  - Blood pressure systolic increased [None]
  - Pleural effusion [None]
